FAERS Safety Report 8000045-9 (Version None)
Quarter: 2011Q4

REPORT INFORMATION
  Report Type: 
  Country: None (occurrence: None)
  Receive Date: 20111222
  Receipt Date: 20070817
  Transmission Date: 20120403
  Serious: No
  Sender: FDA-Public Use
  Company Number: 2007BI017680

PATIENT
  Sex: Female

DRUGS (1)
  1. TYSABRI [Suspect]
     Indication: MULTIPLE SCLEROSIS
     Route: 042
     Dates: start: 20070413, end: 20100913

REACTIONS (22)
  - DIARRHOEA [None]
  - MICTURITION URGENCY [None]
  - URINARY TRACT INFECTION [None]
  - HAEMORRHAGE [None]
  - EYE DISORDER [None]
  - DRUG SPECIFIC ANTIBODY PRESENT [None]
  - FOOT FRACTURE [None]
  - RIB FRACTURE [None]
  - MULTIPLE SCLEROSIS [None]
  - GAIT DISTURBANCE [None]
  - BALANCE DISORDER [None]
  - FALL [None]
  - MUSCULOSKELETAL DISORDER [None]
  - DEPRESSED MOOD [None]
  - DRUG INEFFECTIVE [None]
  - URINARY INCONTINENCE [None]
  - BONE DISORDER [None]
  - HYPOAESTHESIA [None]
  - INSOMNIA [None]
  - MULTIPLE FRACTURES [None]
  - PAIN IN EXTREMITY [None]
  - ABASIA [None]
